FAERS Safety Report 6190936-6 (Version None)
Quarter: 2009Q2

REPORT INFORMATION
  Report Type: 
  Country: None (occurrence: None)
  Receive Date: 20090514
  Receipt Date: 20090504
  Transmission Date: 20091009
  Serious: Yes (Hospitalization)
  Sender: FDA-Public Use
  Company Number: US-MERCK-0905USA00818

PATIENT
  Age: 86 Year
  Sex: Female

DRUGS (2)
  1. PRINIVIL [Suspect]
     Indication: HYPERTENSION
     Route: 048
  2. BACTRIM DS [Suspect]
     Indication: CELLULITIS
     Route: 065

REACTIONS (3)
  - BLOOD POTASSIUM INCREASED [None]
  - HYPERKALAEMIA [None]
  - VENTRICULAR ARRHYTHMIA [None]
